FAERS Safety Report 6538950-2 (Version None)
Quarter: 2010Q1

REPORT INFORMATION
  Report Type: 
  Country: None (occurrence: None)
  Receive Date: 20100115
  Receipt Date: 20100108
  Transmission Date: 20100710
  Serious: Yes (Other)
  Sender: FDA-Public Use
  Company Number: US-SANOFI-AVENTIS-2010SA001502

PATIENT
  Age: 16 Month
  Sex: Male

DRUGS (1)
  1. ZOLPIDEM TARTRATE [Suspect]
     Route: 048
     Dates: start: 20100104

REACTIONS (5)
  - ACCIDENTAL DRUG INTAKE BY CHILD [None]
  - CRYING [None]
  - HALLUCINATION, VISUAL [None]
  - IRRITABILITY [None]
  - NIGHTMARE [None]
